FAERS Safety Report 20193429 (Version 7)
Quarter: 2022Q1

REPORT INFORMATION
  Report Type: Report from Study
  Country: CA (occurrence: CA)
  Receive Date: 20211216
  Receipt Date: 20220317
  Transmission Date: 20220423
  Serious: Yes (Other)
  Sender: FDA-Public Use
  Company Number: CA-BAUSCH-BL-2020-027667

PATIENT

DRUGS (10)
  1. CONTRAVE [Suspect]
     Active Substance: BUPROPION HYDROCHLORIDE\NALTREXONE HYDROCHLORIDE
     Indication: Weight control
     Dosage: STRENGTH: 90/8 MG, 1 TAB IN AM
     Route: 048
     Dates: start: 20200907, end: 20200913
  2. CONTRAVE [Suspect]
     Active Substance: BUPROPION HYDROCHLORIDE\NALTREXONE HYDROCHLORIDE
     Dosage: STRENGTH: 90/8 MG, 1 TAB IN AM AND 1 TAB IN PM
     Route: 048
     Dates: start: 20200914, end: 20200920
  3. CONTRAVE [Suspect]
     Active Substance: BUPROPION HYDROCHLORIDE\NALTREXONE HYDROCHLORIDE
     Dosage: STRENGTH: 90/8 MG, 2 TABS IN AM AND 1 TAB IN PM (1 IN 12 HR)
     Route: 048
     Dates: start: 20200921, end: 20200927
  4. CONTRAVE [Suspect]
     Active Substance: BUPROPION HYDROCHLORIDE\NALTREXONE HYDROCHLORIDE
     Dosage: STRENGTH: 90/8 MG, 2 TABS IN AM AND 2 TAB IN PM
     Route: 048
     Dates: start: 20200928, end: 20220117
  5. TYLENOL [Suspect]
     Active Substance: ACETAMINOPHEN
     Indication: Pain
     Dosage: AT NIGHT
     Route: 048
  6. DILAUDID [Suspect]
     Active Substance: HYDROMORPHONE HYDROCHLORIDE
     Indication: Pain
     Dosage: AT NIGHT
     Route: 065
  7. MICARDIS [Concomitant]
     Active Substance: TELMISARTAN
     Indication: Blood pressure abnormal
     Dosage: DOSE: 80/25 (UNIT UNSPECIFIED), STARTED 3 YEARS PRIOR, ONCE IN AM (1 IN 1 D)
     Route: 048
     Dates: start: 2017
  8. DEXILANT [Concomitant]
     Active Substance: DEXLANSOPRAZOLE
     Indication: Gastrooesophageal reflux disease
     Dosage: STARTED 4 YEARS PRIOR, ONCE IN AM AND ONCE IN PM (DELAYED RELEASE) (60 MG, 1 IN 12 HR)
     Route: 048
     Dates: start: 2016
  9. ESCITALOPRAM [Concomitant]
     Active Substance: ESCITALOPRAM OXALATE
     Indication: Anxiety
     Dosage: ONCE IN PM (10 MG, 1 IN 1 D)
     Route: 048
     Dates: start: 20200728
  10. DICLOFENAC [Concomitant]
     Active Substance: DICLOFENAC
     Indication: Pain
     Dosage: UNK
     Route: 061

REACTIONS (43)
  - Upper limb fracture [Not Recovered/Not Resolved]
  - Fall [Unknown]
  - Ovarian cyst [Recovered/Resolved]
  - Abdominal hernia [Not Recovered/Not Resolved]
  - Ill-defined disorder [Recovered/Resolved]
  - Faeces soft [Recovered/Resolved]
  - Faeces discoloured [Recovered/Resolved]
  - Blood urine present [Recovered/Resolved]
  - Abnormal faeces [Not Recovered/Not Resolved]
  - Back pain [Not Recovered/Not Resolved]
  - Urinary incontinence [Not Recovered/Not Resolved]
  - Cervical cyst [Unknown]
  - Nocturia [Recovered/Resolved]
  - Abdominal distension [Not Recovered/Not Resolved]
  - Adrenal mass [Unknown]
  - Peripheral swelling [Not Recovered/Not Resolved]
  - Contusion [Not Recovered/Not Resolved]
  - Eye contusion [Not Recovered/Not Resolved]
  - Sciatica [Not Recovered/Not Resolved]
  - Illness [Recovered/Resolved]
  - Nasopharyngitis [Recovered/Resolved]
  - Sleep disorder [Not Recovered/Not Resolved]
  - Dry skin [Unknown]
  - Food craving [Not Recovered/Not Resolved]
  - Body temperature increased [Recovered/Resolved]
  - Abdominal discomfort [Not Recovered/Not Resolved]
  - Arthralgia [Not Recovered/Not Resolved]
  - Diarrhoea [Not Recovered/Not Resolved]
  - Nausea [Recovered/Resolved]
  - Stress [Recovered/Resolved]
  - Hyperhidrosis [Recovered/Resolved]
  - Vomiting [Recovered/Resolved]
  - Fatigue [Not Recovered/Not Resolved]
  - Asthenia [Recovered/Resolved]
  - Hot flush [Recovered/Resolved]
  - Constipation [Recovered/Resolved]
  - Lethargy [Unknown]
  - Abdominal pain lower [Recovered/Resolved]
  - Dehydration [Unknown]
  - Feeling abnormal [Unknown]
  - Therapeutic product effect incomplete [Unknown]
  - Product dose omission in error [Unknown]
  - Intentional product use issue [Unknown]

NARRATIVE: CASE EVENT DATE: 20200101
